FAERS Safety Report 8853994 (Version 3)
Quarter: 2012Q4

REPORT INFORMATION
  Report Type: 
  Country: CA (occurrence: CA)
  Receive Date: 20121022
  Receipt Date: 20121111
  Transmission Date: 20130627
  Serious: Yes (Other)
  Sender: FDA-Public Use
  Company Number: PHHY2011CA103230

PATIENT
  Age: 55 Year
  Sex: Female
  Weight: 79.82 kg

DRUGS (2)
  1. EXTAVIA [Suspect]
     Indication: RELAPSING-REMITTING MULTIPLE SCLEROSIS
     Dosage: 6 MIU, QOD
     Route: 058
     Dates: start: 20111024, end: 20111121
  2. EXTAVIA [Suspect]
     Dosage: 2 MIU, QOD
     Route: 058
     Dates: start: 20121011

REACTIONS (8)
  - Gait disturbance [Unknown]
  - Anxiety [Unknown]
  - Mobility decreased [Recovering/Resolving]
  - Sluggishness [Unknown]
  - Muscular weakness [Recovering/Resolving]
  - Influenza like illness [Unknown]
  - Pyrexia [Unknown]
  - Pain in extremity [Unknown]
